FAERS Safety Report 13700402 (Version 3)
Quarter: 2017Q3

REPORT INFORMATION
  Report Type: Report from Study
  Country: None (occurrence: TW)
  Receive Date: 20170629
  Receipt Date: 20170725
  Transmission Date: 20171127
  Serious: Yes (Other)
  Sender: FDA-Public Use
  Company Number: TW-ABBVIE-17K-153-2022810-00

PATIENT
  Age: 40 Year
  Sex: Female
  Weight: 46 kg

DRUGS (1)
  1. HUMIRA [Suspect]
     Active Substance: ADALIMUMAB
     Indication: PITYRIASIS RUBRA PILARIS
     Route: 058
     Dates: start: 20170428, end: 20170623

REACTIONS (7)
  - Arthralgia [Unknown]
  - Joint swelling [Unknown]
  - Pruritus [Unknown]
  - Swelling [Unknown]
  - Off label use [Unknown]
  - Erythema [Unknown]
  - Pain [Unknown]

NARRATIVE: CASE EVENT DATE: 20170428
